FAERS Safety Report 7901780-0 (Version None)
Quarter: 2011Q4

REPORT INFORMATION
  Report Type: 
  Country: None (occurrence: None)
  Receive Date: 20111108
  Receipt Date: 20111025
  Transmission Date: 20120403
  Serious: Yes (Other)
  Sender: FDA-Public Use
  Company Number: PHEH2011US07678

PATIENT
  Age: 85 Year
  Sex: Female

DRUGS (7)
  1. RANITIDINE [Concomitant]
     Dosage: 150 MG, BID
  2. VITAMIN B-12 [Concomitant]
     Dosage: UNK UKN, UNK
  3. EXELON [Suspect]
     Dosage: 1 DF, UNK
     Route: 062
     Dates: start: 20111021
  4. CALCIUM 600 WITH D [Concomitant]
     Dosage: UNK UKN, UNK
  5. SIMVASTATIN [Concomitant]
     Dosage: 40 MG, UNK
  6. VITAMIN D [Concomitant]
     Dosage: UNK UKN, UNK
  7. FISH OIL [Concomitant]
     Dosage: UNK UKN, UNK

REACTIONS (2)
  - MEMORY IMPAIRMENT [None]
  - COGNITIVE DISORDER [None]
